FAERS Safety Report 14386389 (Version 1)
Quarter: 2018Q1

REPORT INFORMATION
  Report Type: Spontaneous
  Country: US (occurrence: US)
  Receive Date: 20180115
  Receipt Date: 20180115
  Transmission Date: 20180509
  Serious: Yes (Other)
  Sender: FDA-Public Use
  Company Number: US-SA-2017SA143509

PATIENT
  Age: 70 Year
  Sex: Female
  Weight: 78 kg

DRUGS (14)
  1. ADRIAMYCIN [Concomitant]
     Active Substance: DOXORUBICIN HYDROCHLORIDE
  2. POTASSIUM [Concomitant]
     Active Substance: POTASSIUM
  3. DOXIL [Concomitant]
     Active Substance: DOXORUBICIN HYDROCHLORIDE
  4. TAXOTERE [Suspect]
     Active Substance: DOCETAXEL
     Dosage: DOSE-140 TO 150 MG
     Route: 051
     Dates: start: 20111027, end: 20111027
  5. DOXORUBICIN [Concomitant]
     Active Substance: DOXORUBICIN
  6. CYCLOPHOSPHAMIDE. [Concomitant]
     Active Substance: CYCLOPHOSPHAMIDE
  7. TAXOL [Concomitant]
     Active Substance: PACLITAXEL
  8. LASIX [Concomitant]
     Active Substance: FUROSEMIDE
  9. TAXOTERE [Suspect]
     Active Substance: DOCETAXEL
     Dosage: DOSE-140 TO 150 MG
     Route: 051
     Dates: start: 20111228, end: 20111228
  10. CARVEDILOL. [Concomitant]
     Active Substance: CARVEDILOL
  11. SIMVASTATIN. [Concomitant]
     Active Substance: SIMVASTATIN
  12. PACLITAXEL. [Concomitant]
     Active Substance: PACLITAXEL
  13. NEOSAR [Concomitant]
     Active Substance: CYCLOPHOSPHAMIDE
  14. TRIMETAPHAN CAMSILATE [Concomitant]

REACTIONS (2)
  - Alopecia [Not Recovered/Not Resolved]
  - Psychological trauma [Unknown]

NARRATIVE: CASE EVENT DATE: 201206
